FAERS Safety Report 10469438 (Version 1)
Quarter: 2014Q3

REPORT INFORMATION
  Report Type: Spontaneous
  Country: US (occurrence: US)
  Receive Date: 20140923
  Receipt Date: 20140923
  Transmission Date: 20150326
  Serious: No
  Sender: FDA-Public Use
  Company Number: US-009507513-1409USA004517

PATIENT
  Age: 17 Year
  Sex: Female

DRUGS (1)
  1. IMPLANON [Suspect]
     Active Substance: ETONOGESTREL
     Indication: CONTRACEPTION
     Dosage: 1 (ROD) DF FOR 3 YEARS, INSERTED LEFT ARM
     Route: 059
     Dates: start: 20120110

REACTIONS (3)
  - Sleep disorder [Unknown]
  - Mood swings [Unknown]
  - Mood altered [Unknown]

NARRATIVE: CASE EVENT DATE: 201201
